FAERS Safety Report 16693146 (Version 1)
Quarter: 2019Q4

REPORT INFORMATION
  Report Type: Spontaneous
  Country: US (occurrence: US)
  Receive Date: 20190811
  Receipt Date: 20190811
  Transmission Date: 20200122
  Serious: Yes (Disabling)
  Sender: FDA-Public Use
  Company Number: None

PATIENT
  Age: 6 Month
  Sex: Female
  Weight: 108 kg

DRUGS (1)
  1. PREDNISONE 50MG TABLET ROX. GENETIC FOR DELTASONE [Suspect]
     Active Substance: PREDNISONE
     Indication: CHRONIC OBSTRUCTIVE PULMONARY DISEASE
     Dosage: ?          QUANTITY:5 TABLET(S);?
     Route: 048
     Dates: start: 20190811

REACTIONS (2)
  - Feeling hot [None]
  - Headache [None]

NARRATIVE: CASE EVENT DATE: 20190811
